FAERS Safety Report 19129131 (Version 1)
Quarter: 2021Q2

REPORT INFORMATION
  Report Type: Spontaneous
  Country: US (occurrence: US)
  Receive Date: 20210413
  Receipt Date: 20210413
  Transmission Date: 20210717
  Serious: Yes (Other)
  Sender: FDA-Public Use
  Company Number: US-FRESENIUS KABI-FK202103691

PATIENT
  Sex: Male

DRUGS (1)
  1. ADENOSINE INJECTION (MANUFACTURER UNKNOWN) [Suspect]
     Active Substance: ADENOSINE
     Indication: VENTRICULAR TACHYCARDIA
     Dosage: DOSE UNKNOWN; COMPLETED 3 DOSES
     Route: 065

REACTIONS (2)
  - Rebound tachycardia [Recovered/Resolved]
  - Ventricular tachycardia [Recovered/Resolved]
